FAERS Safety Report 20034566 (Version 2)
Quarter: 2021Q4

REPORT INFORMATION
  Report Type: Spontaneous
  Country: GB (occurrence: GB)
  Receive Date: 20211104
  Receipt Date: 20211121
  Transmission Date: 20220303
  Serious: Yes (Other)
  Sender: FDA-Public Use
  Company Number: GB-009507513-2111GBR001224

PATIENT
  Age: 64 Year
  Sex: Female

DRUGS (2)
  1. DORZOLAMIDE HYDROCHLORIDE [Suspect]
     Active Substance: DORZOLAMIDE HYDROCHLORIDE
     Indication: Ocular discomfort
     Dosage: 20 MG + 5 MG
     Route: 047
     Dates: start: 20210606, end: 20210807
  2. TIMOLOL [Suspect]
     Active Substance: TIMOLOL
     Indication: Ocular discomfort
     Dosage: 20MG +5 MG
     Dates: start: 20210606, end: 20210807

REACTIONS (1)
  - Mydriasis [Recovering/Resolving]

NARRATIVE: CASE EVENT DATE: 20210715
